FAERS Safety Report 18763876 (Version 1)
Quarter: 2021Q1

REPORT INFORMATION
  Report Type: Spontaneous
  Country: NO (occurrence: NO)
  Receive Date: 20210120
  Receipt Date: 20210120
  Transmission Date: 20210419
  Serious: Yes (Hospitalization, Disabling, Other)
  Sender: FDA-Public Use
  Company Number: NO-JNJFOC-20210130788

PATIENT
  Age: 30 Year
  Sex: Male
  Weight: 70 kg

DRUGS (5)
  1. TRAMADOL HYDROCHLORIDE. [Interacting]
     Active Substance: TRAMADOL HYDROCHLORIDE
     Indication: NECK PAIN
     Route: 065
  2. TRAMADOL HYDROCHLORIDE. [Suspect]
     Active Substance: TRAMADOL HYDROCHLORIDE
     Indication: PAIN IN EXTREMITY
     Dosage: 2 DOSAGE FORM, EVERY 8 HRS
     Route: 065
     Dates: start: 20170401, end: 20201104
  3. ARCOXIA [Interacting]
     Active Substance: ETORICOXIB
     Indication: PRODUCT USED FOR UNKNOWN INDICATION
     Dosage: UNK
     Route: 048
  4. TRAMADOL HYDROCHLORIDE. [Interacting]
     Active Substance: TRAMADOL HYDROCHLORIDE
     Indication: ARTHRALGIA
     Route: 065
  5. TRAMADOL HYDROCHLORIDE. [Interacting]
     Active Substance: TRAMADOL HYDROCHLORIDE
     Indication: ARTHRALGIA
     Route: 065

REACTIONS (3)
  - Cardiac disorder [Recovered/Resolved with Sequelae]
  - Myocardial infarction [Unknown]
  - Drug interaction [Unknown]

NARRATIVE: CASE EVENT DATE: 20180401
